FAERS Safety Report 6370413-X (Version None)
Quarter: 2009Q3

REPORT INFORMATION
  Report Type: 
  Country: None (occurrence: None)
  Receive Date: 20090918
  Receipt Date: 20090915
  Transmission Date: 20100115
  Serious: Yes (Hospitalization)
  Sender: FDA-Public Use
  Company Number: 1000008884

PATIENT
  Age: 57 Year
  Sex: Female

DRUGS (9)
  1. SAVELLA [Suspect]
     Indication: FIBROMYALGIA
     Dosage: SEE IMAGE
     Route: 048
     Dates: start: 20090813, end: 20090814
  2. SAVELLA [Suspect]
     Indication: FIBROMYALGIA
     Dosage: SEE IMAGE
     Route: 048
     Dates: start: 20090815, end: 20090818
  3. SAVELLA [Suspect]
     Indication: FIBROMYALGIA
     Dosage: SEE IMAGE
     Route: 048
     Dates: start: 20090812, end: 20090904
  4. SAVELLA [Suspect]
     Indication: FIBROMYALGIA
     Dosage: 100 MG (50 MG, 2 IN 1 D), ORAL
     Route: 048
     Dates: start: 20090819, end: 20090904
  5. ATENOLOL [Concomitant]
  6. FLONASE [Concomitant]
  7. PRILOSEC [Concomitant]
  8. METFORMIN HCL [Concomitant]
  9. PAMELOR [Concomitant]

REACTIONS (2)
  - PRESYNCOPE [None]
  - SYNCOPE [None]
